FAERS Safety Report 10094890 (Version 1)
Quarter: 2014Q2

REPORT INFORMATION
  Report Type: Spontaneous
  Country: US (occurrence: US)
  Receive Date: 20140422
  Receipt Date: 20140422
  Transmission Date: 20141212
  Serious: No
  Sender: FDA-Public Use
  Company Number: US-BAUSCH-BL-2014-001778

PATIENT
  Age: 81 Year
  Sex: Female

DRUGS (5)
  1. PROLENSA (BROMFENAC OPHTHALMIC SOLUTION) 0.07% [Suspect]
     Indication: PRODUCT USED FOR UNKNOWN INDICATION
  2. SYSTANE ULTRA HIGH PERFORMANCE [Suspect]
     Indication: DRY EYE
     Dosage: 1 DROP IN BOTH EYES; 4 TIMES A DAY
     Dates: start: 201401
  3. OCUFLOX [Suspect]
     Indication: PRODUCT USED FOR UNKNOWN INDICATION
  4. REFRESH [Concomitant]
     Indication: PRODUCT USED FOR UNKNOWN INDICATION
  5. PRED FORTE [Concomitant]
     Indication: PRODUCT USED FOR UNKNOWN INDICATION
     Dates: end: 20140328

REACTIONS (3)
  - Eye swelling [Not Recovered/Not Resolved]
  - Skin atrophy [Not Recovered/Not Resolved]
  - Skin discolouration [Not Recovered/Not Resolved]
